FAERS Safety Report 7546821-8 (Version None)
Quarter: 2011Q2

REPORT INFORMATION
  Report Type: 
  Country: None (occurrence: None)
  Receive Date: 20110524
  Receipt Date: 20110228
  Transmission Date: 20111010
  Serious: No
  Sender: FDA-Public Use
  Company Number: 028462

PATIENT
  Sex: Female

DRUGS (4)
  1. VITAMIN B-COMPLEX WITH MINERALS [Concomitant]
  2. CIMZIA [Suspect]
     Indication: CROHN'S DISEASE
     Dosage: (400 MG 1X/MONTH SUBCUTANEOUS)
     Route: 058
     Dates: start: 20100823, end: 20110110
  3. ORAL CONTRACEPTIVES NOS [Concomitant]
  4. MULTI-VITAMINS [Concomitant]

REACTIONS (3)
  - COUGH [None]
  - DYSPNOEA [None]
  - CHEST DISCOMFORT [None]
